FAERS Safety Report 18902121 (Version 2)
Quarter: 2021Q1

REPORT INFORMATION
  Report Type: Spontaneous
  Country: US (occurrence: US)
  Receive Date: 20210216
  Receipt Date: 20210322
  Transmission Date: 20210420
  Serious: Yes (Life-Threatening, Hospitalization)
  Sender: FDA-Public Use
  Company Number: US-PFIZER INC-2021138200

PATIENT
  Age: 67 Year
  Sex: Female

DRUGS (2)
  1. TOZINAMERAN. [Suspect]
     Active Substance: TOZINAMERAN
     Indication: COVID-19 IMMUNISATION
     Dosage: SINGLE DOSE
     Route: 030
     Dates: start: 20210119, end: 20210119
  2. ANTILYMPHOCYTE IMMUNOGLOBULINS [Suspect]
     Active Substance: THYMOCYTE IMMUNE GLOBULIN NOS
     Dosage: UNK
     Dates: start: 20210118

REACTIONS (12)
  - Adrenal insufficiency [Recovered/Resolved]
  - Pituitary tumour benign [Recovered/Resolved]
  - Pericardial effusion [Recovered/Resolved]
  - Heart rate decreased [Recovered/Resolved]
  - Blood pressure decreased [Recovered/Resolved]
  - Meningitis aseptic [Recovered/Resolved]
  - Syncope [Recovered/Resolved]
  - Off label use [Unknown]
  - Product use issue [Unknown]
  - Adrenocortical insufficiency acute [Recovered/Resolved]
  - Pericarditis [Recovered/Resolved]
  - Sinus bradycardia [Recovered/Resolved]

NARRATIVE: CASE EVENT DATE: 20210119
